FAERS Safety Report 5316980-6 (Version None)
Quarter: 2007Q2

REPORT INFORMATION
  Report Type: 
  Country: None (occurrence: None)
  Receive Date: 20070504
  Receipt Date: 20070424
  Transmission Date: 20071010
  Serious: Yes (Other)
  Sender: FDA-Public Use
  Company Number: US-PFIZER INC-2007034399

PATIENT
  Sex: Female
  Weight: 50 kg

DRUGS (1)
  1. NEURONTIN [Suspect]
     Indication: NEUROPATHY PERIPHERAL
     Route: 048
     Dates: start: 20020101, end: 20060101

REACTIONS (8)
  - DEVICE FAILURE [None]
  - FATIGUE [None]
  - JOINT CREPITATION [None]
  - LETHARGY [None]
  - PAIN IN EXTREMITY [None]
  - SOMNOLENCE [None]
  - TOOTH LOSS [None]
  - UNEVALUABLE EVENT [None]
